FAERS Safety Report 23073726 (Version 3)
Quarter: 2024Q1

REPORT INFORMATION
  Report Type: Spontaneous
  Country: GB (occurrence: GB)
  Receive Date: 20231017
  Receipt Date: 20240220
  Transmission Date: 20240409
  Serious: Yes (Hospitalization)
  Sender: FDA-Public Use
  Company Number: GB-MYLANLABS-2023M1108513

PATIENT
  Age: 46 Year
  Sex: Male
  Weight: 79 kg

DRUGS (6)
  1. CLOZARIL [Suspect]
     Active Substance: CLOZAPINE
     Indication: Schizophrenia
     Dosage: 275 MILLIGRAM, QD
     Route: 048
     Dates: start: 20060124
  2. AMISULPRIDE [Concomitant]
     Active Substance: AMISULPRIDE
     Dosage: 300 MILLIGRAM, BID
     Route: 065
  3. LAMOTRIGINE [Concomitant]
     Active Substance: LAMOTRIGINE
     Dosage: 200 MILLIGRAM, BID
     Route: 065
  4. OMEPRAZOLE [Concomitant]
     Active Substance: OMEPRAZOLE
     Dosage: 20 MILLIGRAM, QD (MANE)
     Route: 065
  5. MONTELUKAST [Concomitant]
     Active Substance: MONTELUKAST SODIUM
     Dosage: 10 MILLIGRAM, QD (NOCTE)
     Route: 065
  6. ALBUTEROL [Concomitant]
     Active Substance: ALBUTEROL
     Dosage: UNK
     Route: 065

REACTIONS (1)
  - Epilepsy [Recovered/Resolved]

NARRATIVE: CASE EVENT DATE: 20231005
